FAERS Safety Report 7056107-6 (Version None)
Quarter: 2010Q4

REPORT INFORMATION
  Report Type: 
  Country: None (occurrence: None)
  Receive Date: 20101021
  Receipt Date: 20101012
  Transmission Date: 20110411
  Serious: Yes (Hospitalization)
  Sender: FDA-Public Use
  Company Number: PHHY2010US68671

PATIENT
  Sex: Female

DRUGS (1)
  1. TOBI [Suspect]
     Indication: CYSTIC FIBROSIS
     Dosage: UNK

REACTIONS (3)
  - LUNG INFECTION PSEUDOMONAL [None]
  - PULMONARY FUNCTION TEST ABNORMAL [None]
  - X-RAY ABNORMAL [None]
